FAERS Safety Report 12796526 (Version 1)
Quarter: 2016Q3

REPORT INFORMATION
  Report Type: Spontaneous
  Country: US (occurrence: US)
  Receive Date: 20160929
  Receipt Date: 20160929
  Transmission Date: 20161109
  Serious: No
  Sender: FDA-Public Use
  Company Number: US-TEVA-697013USA

PATIENT
  Sex: Male
  Weight: 79.45 kg

DRUGS (2)
  1. AZILECT [Suspect]
     Active Substance: RASAGILINE MESYLATE
     Route: 065
  2. AMANTADINE [Suspect]
     Active Substance: AMANTADINE
     Route: 065

REACTIONS (1)
  - Hallucination [Unknown]
